FAERS Safety Report 7224679-4 (Version None)
Quarter: 2011Q1

REPORT INFORMATION
  Report Type: 
  Country: None (occurrence: None)
  Receive Date: 20110106
  Receipt Date: 20110106
  Transmission Date: 20110831
  Serious: Yes (Other)
  Sender: FDA-Public Use
  Company Number: None

PATIENT
  Age: 41 Year
  Sex: Female
  Weight: 79.3795 kg

DRUGS (1)
  1. ROBAXIN [Suspect]
     Indication: MUSCLE SPASMS
     Dosage: 1 NIGHTLY PO
     Route: 048
     Dates: start: 20110103, end: 20110103

REACTIONS (1)
  - HYPERSENSITIVITY [None]
